FAERS Safety Report 24767805 (Version 1)
Quarter: 2024Q4

REPORT INFORMATION
  Report Type: Spontaneous
  Country: US (occurrence: US)
  Receive Date: 20241223
  Receipt Date: 20241223
  Transmission Date: 20250115
  Serious: Yes (Other)
  Sender: INTRA-CELLULAR THERAPIES
  Company Number: US-INTRA-CELLULAR THERAPIES, INC.-2024ICT02026

PATIENT
  Age: 68 Year
  Sex: Male

DRUGS (15)
  1. CAPLYTA [Suspect]
     Active Substance: LUMATEPERONE
     Indication: Schizophrenia
     Dosage: 42 MG, 1X/DAY
     Dates: start: 20240627, end: 20240705
  2. CAPLYTA [Suspect]
     Active Substance: LUMATEPERONE
     Dosage: 42 MG, 3X/WEEK (MON, WED, FRI)
     Dates: start: 20240708, end: 20240708
  3. CAPLYTA [Suspect]
     Active Substance: LUMATEPERONE
     Dosage: 10.5 MG, 3X/WEEK (MON, WED, FRI)
     Dates: start: 20240710, end: 20240721
  4. CAPLYTA [Suspect]
     Active Substance: LUMATEPERONE
     Dosage: 10.5 MG, 1X/DAY
     Dates: start: 20240722, end: 20240725
  5. CAPLYTA [Suspect]
     Active Substance: LUMATEPERONE
     Dosage: 21 MG, 4X/WEEK (SA/SU/TU/TH)
     Dates: start: 20240726, end: 20240801
  6. CAPLYTA [Suspect]
     Active Substance: LUMATEPERONE
     Dosage: 10.5 MG, 3X/WEEK (MO/WE/FR)
     Dates: start: 20240726, end: 20240801
  7. CAPLYTA [Suspect]
     Active Substance: LUMATEPERONE
     Dosage: 21 MG, 1X/DAY
     Dates: start: 20240802
  8. CAPLYTA [Suspect]
     Active Substance: LUMATEPERONE
     Dosage: 31.5 MG, 1X/DAY EVERY MORNING
     Dates: start: 20240820
  9. CAPLYTA [Suspect]
     Active Substance: LUMATEPERONE
     Dosage: 21 MG, 1X/DAY
     Dates: start: 202409, end: 202409
  10. CAPLYTA [Suspect]
     Active Substance: LUMATEPERONE
     Dosage: 10.5 MG, 1X/DAY
     Dates: start: 202409, end: 20241002
  11. SEROQUEL [Suspect]
     Active Substance: QUETIAPINE FUMARATE
     Indication: Psychotic disorder
     Dosage: 100 MG, 2X/DAY
     Dates: start: 20240906, end: 20240906
  12. SEROQUEL [Suspect]
     Active Substance: QUETIAPINE FUMARATE
     Indication: Affective disorder
     Dosage: 25 MG, 2X/DAY
     Dates: start: 20240907, end: 202409
  13. SEROQUEL [Suspect]
     Active Substance: QUETIAPINE FUMARATE
     Dosage: INCREASE SLIGHTLY; TITRATING UP SLOWLY
     Dates: start: 202409
  14. VALPROIC ACID [Concomitant]
     Active Substance: VALPROIC ACID
     Dosage: UNK
  15. VALPROIC ACID [Concomitant]
     Active Substance: VALPROIC ACID
     Dosage: TAPER

REACTIONS (11)
  - Psychotic disorder [Not Recovered/Not Resolved]
  - Posture abnormal [Recovered/Resolved]
  - Propulsive gait [Recovering/Resolving]
  - Cognitive disorder [Recovered/Resolved]
  - Disorientation [Recovered/Resolved]
  - Coordination abnormal [Recovered/Resolved]
  - Agitation [Recovered/Resolved]
  - Anger [Recovered/Resolved]
  - Movement disorder [Not Recovered/Not Resolved]
  - Gait disturbance [Recovering/Resolving]
  - Fall [Recovered/Resolved]

NARRATIVE: CASE EVENT DATE: 20240628
